FAERS Safety Report 8050531-0 (Version None)
Quarter: 2012Q1

REPORT INFORMATION
  Report Type: 
  Country: None (occurrence: None)
  Receive Date: 20120117
  Receipt Date: 20120110
  Transmission Date: 20120608
  Serious: Yes (Other)
  Sender: FDA-Public Use
  Company Number: US-B.I. PHARMACEUTICALS,INC./RIDGEFIELD-2012-EU-00110GD

PATIENT
  Age: 15 Year
  Sex: Female

DRUGS (4)
  1. BISACODYL [Suspect]
     Indication: BOWEL PREPARATION
     Dosage: 5 MG
  2. CETIRIZINE [Concomitant]
  3. POLYETHYLENE GLYCOL [Suspect]
     Indication: BOWEL PREPARATION
     Dosage: 527 G
     Route: 048
  4. OMEPRAZOLE [Concomitant]

REACTIONS (1)
  - OESOPHAGITIS [None]
